FAERS Safety Report 7436610-7 (Version None)
Quarter: 2011Q2

REPORT INFORMATION
  Report Type: 
  Country: None (occurrence: None)
  Receive Date: 20110418
  Receipt Date: 20110401
  Transmission Date: 20111010
  Serious: Yes (Hospitalization, Other)
  Sender: FDA-Public Use
  Company Number: GGEL20110200063

PATIENT
  Age: 36 Year
  Sex: Female

DRUGS (4)
  1. LACOSAMIDE [Suspect]
     Indication: EPILEPSY
  2. OXCARBAZEPINE [Suspect]
     Indication: EPILEPSY
     Dosage: 1200 MILLIGRAM, 1 IN 1 D ; 300 MILLIGRAM, 1 IN D
  3. TOPIRAMATE [Suspect]
     Indication: EPILEPSY
     Dosage: ORAL USE
     Route: 048
  4. PHENYTOIN [Suspect]
     Indication: EPILEPSY

REACTIONS (6)
  - DIPLOPIA [None]
  - NEUROTOXICITY [None]
  - BALANCE DISORDER [None]
  - DRUG INTERACTION [None]
  - CONVULSION [None]
  - ANTICONVULSANT DRUG LEVEL DECREASED [None]
